FAERS Safety Report 8546015-3 (Version None)
Quarter: 2012Q3

REPORT INFORMATION
  Report Type: 
  Country: None (occurrence: None)
  Receive Date: 20120727
  Receipt Date: 20111201
  Transmission Date: 20120928
  Serious: No
  Sender: FDA-Public Use
  Company Number: US-ASTRAZENECA-2011SE73154

PATIENT
  Age: 51 Year
  Sex: Female
  Weight: 81.6 kg

DRUGS (6)
  1. SEROQUEL [Suspect]
     Indication: INSOMNIA
     Route: 048
     Dates: start: 20111030
  2. HYDROCODONE AP [Concomitant]
     Indication: INTERVERTEBRAL DISC DISPLACEMENT
  3. PRAVASTATIN [Concomitant]
     Indication: BLOOD CHOLESTEROL ABNORMAL
  4. ZOLOFT [Concomitant]
     Indication: BIPOLAR I DISORDER
  5. AMPHETAMINES [Concomitant]
     Indication: PANIC ATTACK
  6. XANAX [Concomitant]
     Indication: BIPOLAR I DISORDER

REACTIONS (8)
  - OROPHARYNGEAL PAIN [None]
  - OFF LABEL USE [None]
  - UPPER RESPIRATORY TRACT INFECTION [None]
  - EAR PAIN [None]
  - BRONCHITIS [None]
  - HEADACHE [None]
  - DYSPHONIA [None]
  - PYREXIA [None]
